FAERS Safety Report 11515328 (Version 3)
Quarter: 2015Q4

REPORT INFORMATION
  Report Type: Report from Study
  Country: US (occurrence: US)
  Receive Date: 20150916
  Receipt Date: 20151002
  Transmission Date: 20160304
  Serious: Yes (Other)
  Sender: FDA-Public Use
  Company Number: US-TEVA-593773USA

PATIENT
  Age: 27 Year
  Sex: Female

DRUGS (1)
  1. CLARAVIS [Suspect]
     Active Substance: ISOTRETINOIN
     Route: 048
     Dates: start: 20150630

REACTIONS (2)
  - Unintended pregnancy [Recovered/Resolved]
  - Abortion spontaneous [Recovering/Resolving]

NARRATIVE: CASE EVENT DATE: 20150828
